FAERS Safety Report 23592613 (Version 3)
Quarter: 2024Q3

REPORT INFORMATION
  Report Type: Spontaneous
  Country: AT (occurrence: AT)
  Receive Date: 20240304
  Receipt Date: 20240919
  Transmission Date: 20241017
  Serious: Yes (Hospitalization)
  Sender: SANDOZ
  Company Number: AT-ROCHE-2871418

PATIENT
  Age: 47 Year
  Sex: Female

DRUGS (27)
  1. CAPECITABINE [Suspect]
     Active Substance: CAPECITABINE
     Dosage: 500 MG
     Route: 048
     Dates: start: 20181015
  2. CAPECITABINE [Suspect]
     Active Substance: CAPECITABINE
     Dosage: 500 MG
     Route: 048
     Dates: start: 20210512, end: 20210513
  3. CAPECITABINE [Suspect]
     Active Substance: CAPECITABINE
     Indication: HER2 positive breast cancer
     Dosage: MOST RECENT DOSE PRIOR TO EVENT ONSET: 10/SEP/2020SIX TIMES DAILY FOR THREE WEEKS, ONE WEEK BREAKUNK
     Route: 065
     Dates: start: 20200910
  4. DOCETAXEL [Suspect]
     Active Substance: DOCETAXEL\DOCETAXEL ANHYDROUS
     Dosage: 75 MG/M2 TIW
     Route: 042
     Dates: start: 20180924
  5. DOCETAXEL [Suspect]
     Active Substance: DOCETAXEL\DOCETAXEL ANHYDROUS
     Indication: HER2 positive breast cancer
     Dosage: DATE OF MOST RECENT DOSE: 23/JAN/2019UNK
     Route: 065
     Dates: start: 20190123
  6. DENOSUMAB [Suspect]
     Active Substance: DENOSUMAB
     Indication: HER2 positive breast cancer
     Dosage: MOST RECENT DOSE PRIOR TO THE EVENT: 18/SEP/2018
     Route: 058
     Dates: start: 20180918
  7. PERTUZUMAB [Suspect]
     Active Substance: PERTUZUMAB
     Dosage: 420 MG TIW
     Route: 042
     Dates: start: 20181015
  8. PERTUZUMAB [Suspect]
     Active Substance: PERTUZUMAB
     Indication: HER2 positive breast cancer
     Dosage: 840 MG TIW
     Route: 042
     Dates: start: 20180924, end: 20181015
  9. PERTUZUMAB [Suspect]
     Active Substance: PERTUZUMAB
     Dosage: MOST RECENT DOSE ON 10/SEP/2020UNK
     Route: 065
     Dates: start: 20200910
  10. TAMOXIFEN [Suspect]
     Active Substance: TAMOXIFEN
     Dosage: 20 MG
     Route: 048
     Dates: start: 20200325, end: 20210504
  11. TAMOXIFEN [Suspect]
     Active Substance: TAMOXIFEN
     Indication: HER2 positive breast cancer
     Dosage: MOST RECENT DOSE ON 30/SEP/2020UNK
     Route: 065
     Dates: start: 20200930
  12. TRASTUZUMAB [Suspect]
     Active Substance: TRASTUZUMAB
     Dosage: 6 MG TIW
     Route: 042
     Dates: start: 20181015
  13. TRASTUZUMAB [Suspect]
     Active Substance: TRASTUZUMAB
     Dosage: TIW
     Route: 042
     Dates: start: 20210512, end: 20211103
  14. TRASTUZUMAB [Suspect]
     Active Substance: TRASTUZUMAB
     Indication: HER2 positive breast cancer
     Dosage: 8 MG/KG TIW
     Route: 042
     Dates: start: 20180924, end: 20180924
  15. TRASTUZUMAB [Suspect]
     Active Substance: TRASTUZUMAB
     Dosage: MOST RECENT DOSE ON 10/SEP/2020UNK
     Route: 065
     Dates: start: 20200910
  16. ADO-TRASTUZUMAB EMTANSINE [Suspect]
     Active Substance: ADO-TRASTUZUMAB EMTANSINE
     Dosage: 3.6 MG/KG TIW
     Route: 042
     Dates: start: 20201001
  17. ADO-TRASTUZUMAB EMTANSINE [Suspect]
     Active Substance: ADO-TRASTUZUMAB EMTANSINE
     Indication: HER2 positive breast cancer
     Dosage: DATE OF MOST RECENT DOSE: 21/APR/2021UNK
     Route: 065
     Dates: start: 20210421
  18. TUCATINIB [Suspect]
     Active Substance: TUCATINIB
     Dosage: 150 MG
     Route: 048
     Dates: start: 20210512, end: 20210513
  19. TUCATINIB [Suspect]
     Active Substance: TUCATINIB
     Dosage: 150 MG
     Route: 048
     Dates: start: 20210515, end: 20211124
  20. TUCATINIB [Suspect]
     Active Substance: TUCATINIB
     Indication: HER2 positive breast cancer
     Dosage: MOST RECENT DOSE ON 13/MAY/2021UNK
     Route: 065
     Dates: start: 20210513
  21. ASCORBIC ACID\CALCIUM PHOSPHATE\CHOLECALCIFEROL\CITRIC ACID MONOHYDRAT [Concomitant]
     Active Substance: ASCORBIC ACID\CALCIUM PHOSPHATE\CHOLECALCIFEROL\CITRIC ACID MONOHYDRATE
     Indication: Product used for unknown indication
     Dosage: UNK
     Route: 065
     Dates: start: 20190827
  22. DRONABINOL [Concomitant]
     Active Substance: DRONABINOL
     Indication: Product used for unknown indication
     Dosage: UNK
     Route: 065
     Dates: start: 20210304
  23. MODERNA COVID-19 VACCINE [Concomitant]
     Active Substance: ELASOMERAN
     Indication: COVID-19 immunisation
     Dosage: 0.5 DF
     Route: 030
     Dates: start: 20210315, end: 20210315
  24. MODERNA COVID-19 VACCINE [Concomitant]
     Active Substance: ELASOMERAN
     Dosage: 0.500DF
     Route: 030
     Dates: start: 20210412, end: 20210412
  25. CITALOPRAM HYDROBROMIDE [Concomitant]
     Active Substance: CITALOPRAM HYDROBROMIDE
     Indication: Product used for unknown indication
     Dosage: UNK
     Route: 065
  26. ALPRAZOLAM [Concomitant]
     Active Substance: ALPRAZOLAM
     Indication: Product used for unknown indication
     Dosage: UNK
     Route: 065
     Dates: start: 20181114
  27. ZOFRAN [Concomitant]
     Active Substance: ONDANSETRON HYDROCHLORIDE
     Indication: Product used for unknown indication
     Dosage: UNK
     Route: 065
     Dates: start: 20180924, end: 20210421

REACTIONS (1)
  - Epilepsy [Recovered/Resolved]

NARRATIVE: CASE EVENT DATE: 20210513
